FAERS Safety Report 18567899 (Version 1)
Quarter: 2020Q4

REPORT INFORMATION
  Report Type: Spontaneous
  Country: None (occurrence: CA)
  Receive Date: 20201202
  Receipt Date: 20201202
  Transmission Date: 20210114
  Serious: Yes (Life-Threatening, Other)
  Sender: FDA-Public Use
  Company Number: CA-ORION CORPORATION ORION PHARMA-20_00011948

PATIENT
  Age: 9 Year
  Sex: Female

DRUGS (19)
  1. RITUXIMAB. [Suspect]
     Active Substance: RITUXIMAB
     Dosage: 1 G (INFUSIONS WERE SPACED TO EVERY 6 MONTHS)
     Route: 065
  2. LEFLUNOMIDE. [Suspect]
     Active Substance: LEFLUNOMIDE
     Indication: GRANULOMATOSIS WITH POLYANGIITIS
     Route: 065
     Dates: end: 201806
  3. PREDNISONE. [Suspect]
     Active Substance: PREDNISONE
     Indication: GRANULOMATOSIS WITH POLYANGIITIS
     Dosage: INDUCTION TREATMENT, UNK (HIGH DOSE)
     Route: 065
  4. PREDNISONE. [Suspect]
     Active Substance: PREDNISONE
     Dosage: TAPERED THE PREDNISONE FROM 5 MG DAILY
     Route: 065
     Dates: end: 201911
  5. METHOTREXATE. [Suspect]
     Active Substance: METHOTREXATE
     Indication: GRANULOMATOSIS WITH POLYANGIITIS
     Dosage: FOR MAINTENANCE
     Route: 065
  6. METHOTREXATE. [Suspect]
     Active Substance: METHOTREXATE
     Route: 048
     Dates: start: 2013, end: 201907
  7. RITUXIMAB. [Suspect]
     Active Substance: RITUXIMAB
     Dosage: 375 MG/M2 (375 MG/M2/WEEK X 4)
     Route: 065
     Dates: start: 2013
  8. RITUXIMAB. [Suspect]
     Active Substance: RITUXIMAB
     Dosage: FOLLOWED, FOR MAINTENANCE, BY REPEAT COURSES OF RTX (EVERY 6 THEN EVERY 4 MONTHS) (INFUSIONS)
     Route: 065
  9. RITUXIMAB. [Suspect]
     Active Substance: RITUXIMAB
     Indication: GRANULOMATOSIS WITH POLYANGIITIS
     Dosage: INDUCTION TREATMENT, 375 MG/M2/WEEK X 4
     Route: 065
     Dates: start: 2008
  10. MYCOPHENOLATE MOFETIL. [Suspect]
     Active Substance: MYCOPHENOLATE MOFETIL
     Indication: GRANULOMATOSIS WITH POLYANGIITIS
     Dosage: MAINTENANCE THERAPY
     Route: 065
  11. PREDNISONE. [Suspect]
     Active Substance: PREDNISONE
     Dosage: GRADUALLY DECREASED THE PREDNISONE DOWN TO 5 MG DAILY
     Route: 065
     Dates: start: 201805, end: 201911
  12. ECULIZUMAB [Suspect]
     Active Substance: ECULIZUMAB
     Indication: GRANULOMATOSIS WITH POLYANGIITIS
     Dosage: SINGLE DOSE
     Route: 065
     Dates: start: 2013
  13. LEFLUNOMIDE. [Suspect]
     Active Substance: LEFLUNOMIDE
     Route: 065
     Dates: end: 201806
  14. PREDNISONE. [Suspect]
     Active Substance: PREDNISONE
     Route: 065
     Dates: start: 2010
  15. PREDNISONE. [Suspect]
     Active Substance: PREDNISONE
     Dosage: MAINTENANCE THERAPY, (LOW-DOSE)
     Route: 065
  16. PREDNISONE. [Suspect]
     Active Substance: PREDNISONE
     Dosage: HIGH-DOSE
     Route: 065
     Dates: start: 2013
  17. PREDNISONE. [Suspect]
     Active Substance: PREDNISONE
     Dosage: (MORE THAN 15 MG DAILY)
     Route: 065
  18. HUMAN IMMUNOGLBULIN [Suspect]
     Active Substance: HUMAN IMMUNOGLOBULIN G
     Indication: GRANULOMATOSIS WITH POLYANGIITIS
     Route: 042
  19. CYCLOPHOSPHAMIDE. [Suspect]
     Active Substance: CYCLOPHOSPHAMIDE
     Indication: GRANULOMATOSIS WITH POLYANGIITIS
     Dosage: UNK (7 PULSES)
     Route: 042
     Dates: start: 2007

REACTIONS (13)
  - Cytopenia [Unknown]
  - Cytomegalovirus infection [Unknown]
  - Osteomyelitis [Unknown]
  - Drug ineffective for unapproved indication [Unknown]
  - Pneumocystis jirovecii pneumonia [Unknown]
  - Pneumonia bacterial [Unknown]
  - Product use in unapproved indication [Unknown]
  - Granulomatosis with polyangiitis [Recovering/Resolving]
  - Arthritis bacterial [Unknown]
  - Pneumothorax [Not Recovered/Not Resolved]
  - Acute respiratory distress syndrome [Unknown]
  - Osteonecrosis [Unknown]
  - Osteoporosis [Unknown]

NARRATIVE: CASE EVENT DATE: 2013
